FAERS Safety Report 5733235-6 (Version None)
Quarter: 2008Q2

REPORT INFORMATION
  Report Type: 
  Country: None (occurrence: None)
  Receive Date: 20080509
  Receipt Date: 20080429
  Transmission Date: 20081010
  Serious: Yes (Other)
  Sender: FDA-Public Use
  Company Number: GB-PURDUE-GBR_2008_0003978

PATIENT
  Age: 44 Year
  Sex: Female
  Weight: 90 kg

DRUGS (2)
  1. MORPHINE SULFATE [Suspect]
     Indication: DRUG USE FOR UNKNOWN INDICATION
     Route: 065
  2. LYRICA [Suspect]
     Indication: BACK PAIN
     Dosage: 100 MG, BID
     Route: 048
     Dates: start: 20060101

REACTIONS (1)
  - HYPOGONADISM [None]
